FAERS Safety Report 9206035 (Version 2)
Quarter: 2013Q2

REPORT INFORMATION
  Report Type: Spontaneous
  Country: US (occurrence: None)
  Receive Date: 20120731
  Receipt Date: 20121130
  Transmission Date: 20140414
  Serious: Yes (Other)
  Sender: FDA-Public Use
  Company Number: US201205000224

PATIENT
  Sex: Female

DRUGS (1)
  1. BYETTA [Suspect]
     Route: 058
     Dates: start: 201110

REACTIONS (4)
  - Blood glucose decreased [None]
  - Incorrect dose administered [None]
  - Underdose [None]
  - Weight decreased [None]
